FAERS Safety Report 8286854-X (Version None)
Quarter: 2012Q2

REPORT INFORMATION
  Report Type: 
  Country: None (occurrence: None)
  Receive Date: 20120416
  Receipt Date: 20120412
  Transmission Date: 20120825
  Serious: No
  Sender: FDA-Public Use
  Company Number: US-BAYER-2012-035962

PATIENT
  Age: 68 Year
  Sex: Female

DRUGS (2)
  1. ULTRAVIST 150 [Suspect]
     Indication: COMPUTERISED TOMOGRAM
     Dosage: 100 ML, UNK, POWER INJECTOR
     Route: 042
     Dates: start: 20120412
  2. INDERAL [Concomitant]

REACTIONS (4)
  - EYE PRURITUS [None]
  - EYE SWELLING [None]
  - OCULAR HYPERAEMIA [None]
  - SNEEZING [None]
